FAERS Safety Report 10176387 (Version 1)
Quarter: 2014Q2

REPORT INFORMATION
  Report Type: Spontaneous
  Country: US (occurrence: None)
  Receive Date: 20140515
  Receipt Date: 20140515
  Transmission Date: 20141212
  Serious: No
  Sender: FDA-Public Use
  Company Number: None

PATIENT
  Age: 77 Year
  Sex: Male

DRUGS (1)
  1. ZYTIGA 250 MG [Suspect]
     Indication: PROSTATE CANCER
     Dosage: 4 TABLETS QD ORAL
     Route: 048

REACTIONS (1)
  - Drug ineffective [None]
